FAERS Safety Report 8310746 (Version 6)
Quarter: 2012Q4

REPORT INFORMATION
  Report Type: 
  Country: JP (occurrence: JP)
  Receive Date: 20111226
  Receipt Date: 20121120
  Transmission Date: 20130627
  Serious: Yes (Hospitalization)
  Sender: FDA-Public Use
  Company Number: JP-AMGEN-JPNSP2011059808

PATIENT
  Age: 73 Year
  Sex: Male
  Weight: 72 kg

DRUGS (16)
  1. ROMIPLOSTIM - KHK [Suspect]
     Indication: IDIOPATHIC THROMBOCYTOPENIC PURPURA
     Dosage: 1 mug/kg, qd
     Route: 058
     Dates: start: 20110805, end: 20110805
  2. ROMIPLOSTIM - KHK [Suspect]
     Dosage: 2 mug/kg, qwk
     Route: 058
     Dates: start: 20110812, end: 20110826
  3. ROMIPLOSTIM - KHK [Suspect]
     Dosage: 1 mug/kg, qwk
     Route: 058
     Dates: start: 20110902, end: 20120909
  4. ROMIPLOSTIM - KHK [Suspect]
     Dosage: 1 mug/kg, q2wk
     Route: 058
     Dates: start: 20110922, end: 20111021
  5. ROMIPLOSTIM - KHK [Suspect]
     Dosage: 1 mug/kg, qd
     Route: 058
     Dates: start: 20111125, end: 20111125
  6. ROMIPLOSTIM - KHK [Suspect]
     Dosage: 1 mug/kg, qd
     Route: 058
     Dates: start: 20111209, end: 20111209
  7. ROMIPLOSTIM - KHK [Suspect]
     Dosage: 1 mug/kg, q2wk
     Route: 058
     Dates: start: 20111228, end: 20120210
  8. ROMIPLOSTIM - KHK [Suspect]
     Dosage: 1 mug/kg, qd
     Route: 058
     Dates: start: 20120309, end: 20120309
  9. ROMIPLOSTIM - KHK [Suspect]
     Dosage: 1 mug/kg, q3wk
     Route: 058
     Dates: start: 20120406
  10. PREDONINE [Concomitant]
     Indication: IDIOPATHIC THROMBOCYTOPENIC PURPURA
     Dosage: 12.5 mg, qd
     Route: 048
     Dates: start: 20110714
  11. ALLORIN [Concomitant]
     Indication: HYPERURICAEMIA
     Dosage: UNK
     Route: 048
  12. MADOPAR [Concomitant]
     Indication: PARKINSON^S DISEASE
     Route: 048
  13. PARIET [Concomitant]
     Indication: PROPHYLAXIS
     Dosage: UNK
     Route: 048
  14. LENDEM [Concomitant]
     Indication: INSOMNIA
     Dosage: UNK
     Route: 048
  15. BONALON [Concomitant]
     Indication: PROPHYLAXIS
     Dosage: UNK
     Route: 048
  16. MICARDIS [Concomitant]
     Dosage: 40 mg, qd
     Route: 048

REACTIONS (2)
  - Pulmonary embolism [Recovered/Resolved]
  - Deep vein thrombosis [Recovered/Resolved]
